FAERS Safety Report 4608794-7 (Version None)
Quarter: 2005Q1

REPORT INFORMATION
  Report Type: 
  Country: None (occurrence: None)
  Receive Date: 20050309
  Receipt Date: 20050221
  Transmission Date: 20050727
  Serious: Yes (Hospitalization)
  Sender: FDA-Public Use
  Company Number: D01200400447

PATIENT
  Age: 68 Year
  Sex: Male

DRUGS (6)
  1. (SR57746 OR PALCEBO)- CAPSULE - 1 MG [Suspect]
     Indication: CHEMOTHERAPY NEUROTOXICITY ATTENUATION
     Dosage: 1 MG QD, ORAL
     Route: 048
     Dates: start: 20020904, end: 20030312
  2. (SR57746 OR PALCEBO)- CAPSULE - 1 MG [Suspect]
     Indication: COLORECTAL CANCER METASTATIC
     Dosage: 1 MG QD, ORAL
     Route: 048
     Dates: start: 20020904, end: 20030312
  3. (OXALIPLATIN) - SOLUTION - 85 MG/M2 [Suspect]
     Dosage: 85MG/M2 Q2W , INTRAVENOUS NOS
     Route: 042
     Dates: start: 20021128, end: 20021128
  4. FLUOROURACIL [Suspect]
     Dosage: SEE IMAGE
     Route: 042
     Dates: start: 20030219, end: 20030220
  5. LEUCOVORIN CALCIUM [Suspect]
     Dosage: 200 MG/M2 AS 2 HOURS INFUSION ON D1-D2 Q2W,INTRAVENOUS NOS
     Route: 042
     Dates: start: 20030219, end: 20030220
  6. OROXIN (SULFAMETHOXYPYRIDAZINE) [Concomitant]

REACTIONS (18)
  - ACTIVITIES OF DAILY LIVING IMPAIRED [None]
  - COUGH [None]
  - DEHYDRATION [None]
  - DRUG TOXICITY [None]
  - DYSAESTHESIA [None]
  - DYSGRAPHIA [None]
  - DYSPHONIA [None]
  - HEMIPLEGIA [None]
  - ILL-DEFINED DISORDER [None]
  - LIP DISORDER [None]
  - MIGRATION OF IMPLANT [None]
  - NEUROPATHY PERIPHERAL [None]
  - ORAL CANDIDIASIS [None]
  - PARAESTHESIA [None]
  - PARAESTHESIA ORAL [None]
  - PHARYNGOLARYNGEAL PAIN [None]
  - VOCAL CORD DISORDER [None]
  - VOCAL CORD PARALYSIS [None]
